FAERS Safety Report 8327883-7 (Version None)
Quarter: 2012Q2

REPORT INFORMATION
  Report Type: 
  Country: None (occurrence: None)
  Receive Date: 20120502
  Receipt Date: 20120420
  Transmission Date: 20120825
  Serious: Yes (Other)
  Sender: FDA-Public Use
  Company Number: US-JNJFOC-20120200405

PATIENT
  Sex: Female
  Weight: 65.77 kg

DRUGS (8)
  1. REMICADE [Suspect]
     Indication: OSTEOARTHRITIS
     Route: 042
     Dates: end: 20110101
  2. REMICADE [Suspect]
     Route: 042
     Dates: start: 20091001
  3. METHOTREXATE [Suspect]
     Indication: PSORIATIC ARTHROPATHY
     Route: 048
     Dates: start: 20090101
  4. FOLIC ACID [Suspect]
     Indication: NUTRITIONAL SUPPORT
     Route: 048
     Dates: start: 20090101
  5. REMICADE [Suspect]
     Route: 042
     Dates: end: 20110101
  6. REMICADE [Suspect]
     Indication: PSORIATIC ARTHROPATHY
     Route: 042
     Dates: start: 20091001
  7. MORPHINE [Concomitant]
     Indication: PAIN
     Route: 048
  8. METHOTREXATE [Suspect]
     Indication: OSTEOARTHRITIS
     Route: 048
     Dates: start: 20090101

REACTIONS (6)
  - ADVERSE DRUG REACTION [None]
  - IRRITABLE BOWEL SYNDROME [None]
  - INFUSION RELATED REACTION [None]
  - HYPERSENSITIVITY [None]
  - SURGERY [None]
  - VITAMIN D DECREASED [None]
